FAERS Safety Report 10369387 (Version 3)
Quarter: 2015Q1

REPORT INFORMATION
  Report Type: Spontaneous
  Country: BE (occurrence: BE)
  Receive Date: 20140807
  Receipt Date: 20150206
  Transmission Date: 20150720
  Serious: Yes (Other)
  Sender: FDA-Public Use
  Company Number: BE-PFIZER INC-2014160427

PATIENT
  Age: 38 Year
  Sex: Male
  Weight: 70 kg

DRUGS (3)
  1. DEANXIT [Concomitant]
     Active Substance: FLUPENTIXOL DIHYDROCHLORIDE\MELITRACEN HYDROCHLORIDE
     Dosage: UNK
     Route: 048
     Dates: start: 201206
  2. ENBREL [Suspect]
     Active Substance: ETANERCEPT
     Indication: PSORIASIS
     Dosage: 50 MG, WEEKLY
     Route: 058
     Dates: start: 20140124, end: 201501
  3. DOXYCYCLINE MONOHYDRATE [Interacting]
     Active Substance: DOXYCYCLINE
     Dosage: 200 MG, 1X/DAY
     Dates: start: 20140602, end: 20140611

REACTIONS (6)
  - Lyme disease [Recovered/Resolved]
  - Feeling abnormal [Recovered/Resolved]
  - Arthropod bite [Recovered/Resolved]
  - Influenza like illness [Recovered/Resolved]
  - Drug interaction [Recovered/Resolved]
  - Fatigue [Recovered/Resolved]

NARRATIVE: CASE EVENT DATE: 2014
